FAERS Safety Report 17641685 (Version 2)
Quarter: 2020Q2

REPORT INFORMATION
  Report Type: Report from Study
  Country: TR (occurrence: TR)
  Receive Date: 20200407
  Receipt Date: 20200410
  Transmission Date: 20200713
  Serious: Yes (Death)
  Sender: FDA-Public Use
  Company Number: NVSC2020TR093763

PATIENT
  Age: 83 Year
  Sex: Male
  Weight: 85 kg

DRUGS (1)
  1. REVOLADE [Suspect]
     Active Substance: ELTROMBOPAG
     Indication: PRODUCT USED FOR UNKNOWN INDICATION
     Dosage: 50 MG
     Route: 048
     Dates: start: 20181119

REACTIONS (2)
  - Pneumonia fungal [Fatal]
  - Multiple organ dysfunction syndrome [Fatal]
